FAERS Safety Report 5625761-5 (Version None)
Quarter: 2008Q1

REPORT INFORMATION
  Report Type: 
  Country: None (occurrence: None)
  Receive Date: 20080214
  Receipt Date: 20080204
  Transmission Date: 20080703
  Serious: Yes (Other)
  Sender: FDA-Public Use
  Company Number: US-WYE-H02488508

PATIENT
  Sex: Male
  Weight: 98.06 kg

DRUGS (1)
  1. TORISEL [Suspect]
     Indication: RENAL CELL CARCINOMA
     Route: 042
     Dates: start: 20080204, end: 20080204

REACTIONS (2)
  - CHEST DISCOMFORT [None]
  - FLUSHING [None]
